FAERS Safety Report 6764484-6 (Version None)
Quarter: 2010Q2

REPORT INFORMATION
  Report Type: 
  Country: None (occurrence: None)
  Receive Date: 20100609
  Receipt Date: 20100323
  Transmission Date: 20101027
  Serious: No
  Sender: FDA-Public Use
  Company Number: 2010007100

PATIENT
  Age: 30 Month
  Sex: Male

DRUGS (1)
  1. CHILDREN'S ZYRTEC ALLERGY [Suspect]
     Indication: ACCIDENTAL EXPOSURE
     Dosage: 15ML ONE TIME ORAL
     Route: 048
     Dates: start: 20100323, end: 20100323

REACTIONS (1)
  - ACCIDENTAL EXPOSURE [None]
